FAERS Safety Report 9947118 (Version 1)
Quarter: 2014Q1

REPORT INFORMATION
  Report Type: Report from Study
  Country: US (occurrence: US)
  Receive Date: 20140303
  Receipt Date: 20140303
  Transmission Date: 20141002
  Serious: Yes (Hospitalization)
  Sender: FDA-Public Use
  Company Number: US-ABBVIE-13P-163-1060481-00

PATIENT
  Age: 49 Year
  Sex: Male

DRUGS (7)
  1. HUMIRA [Suspect]
     Indication: COLITIS ULCERATIVE
     Dates: start: 20130102, end: 20130102
  2. HUMIRA [Suspect]
     Dates: start: 20130116
  3. HUMIRA [Suspect]
     Dates: start: 20130131, end: 20130131
  4. CELEXA [Concomitant]
     Indication: DEPRESSION
     Dosage: DAILY
  5. FOLIC ACID [Concomitant]
     Indication: COLITIS ULCERATIVE
     Dosage: DAILY
  6. NORCO [Concomitant]
     Indication: PAIN
  7. PREDNISONE [Concomitant]
     Indication: PRODUCT USED FOR UNKNOWN INDICATION
     Dosage: TAPERING DOSE FOR PAST MONTH NOW 1 MG DAILY

REACTIONS (2)
  - Colitis ulcerative [Recovering/Resolving]
  - Gastrooesophageal reflux disease [Unknown]
